FAERS Safety Report 9170538 (Version 1)
Quarter: 2013Q1

REPORT INFORMATION
  Report Type: Spontaneous
  Country: US (occurrence: US)
  Receive Date: 20130319
  Receipt Date: 20130319
  Transmission Date: 20140127
  Serious: Yes (Other)
  Sender: FDA-Public Use
  Company Number: US-009507513-1303USA008539

PATIENT
  Sex: Female

DRUGS (1)
  1. NEXPLANON [Suspect]
     Indication: CONTRACEPTION
     Dosage: UNK
     Dates: start: 20120726

REACTIONS (5)
  - Loss of consciousness [Unknown]
  - Hyperhidrosis [Unknown]
  - Dehydration [Recovering/Resolving]
  - Device dislocation [Unknown]
  - Implant site bruising [Recovered/Resolved]
